FAERS Safety Report 25372732 (Version 1)
Quarter: 2025Q2

REPORT INFORMATION
  Report Type: Spontaneous
  Country: US (occurrence: US)
  Receive Date: 20250529
  Receipt Date: 20250529
  Transmission Date: 20250717
  Serious: Yes (Other)
  Sender: CATALENT PHARMA SOLUTIONS
  Company Number: US-CATALENT PHARMA SOLUTIONS-CAT-000799-2025

PATIENT
  Age: 31 Year
  Sex: Female

DRUGS (1)
  1. VALPROIC ACID [Suspect]
     Active Substance: VALPROIC ACID
     Indication: Bipolar disorder
     Route: 065

REACTIONS (2)
  - Central sleep apnoea syndrome [Recovering/Resolving]
  - Off label use [Recovered/Resolved]
